FAERS Safety Report 18845377 (Version 1)
Quarter: 2021Q1

REPORT INFORMATION
  Report Type: Spontaneous
  Country: DE (occurrence: DE)
  Receive Date: 20210204
  Receipt Date: 20210204
  Transmission Date: 20210419
  Serious: Yes (Death, Hospitalization)
  Sender: FDA-Public Use
  Company Number: DE-ROCHE-2763162

PATIENT
  Age: 49 Year
  Sex: Female
  Weight: 60 kg

DRUGS (5)
  1. TRIMIPRAMINE [Concomitant]
     Active Substance: TRIMIPRAMINE
  2. TECENTRIQ [Suspect]
     Active Substance: ATEZOLIZUMAB
     Indication: SMALL CELL LUNG CANCER
     Route: 041
     Dates: start: 20201028, end: 20201219
  3. HYDROMORPHONE [Concomitant]
     Active Substance: HYDROMORPHONE
  4. ONDANSETRON [Concomitant]
     Active Substance: ONDANSETRON
  5. CASPOFUNGIN [Concomitant]
     Active Substance: CASPOFUNGIN

REACTIONS (2)
  - Hepatic failure [Fatal]
  - Immune-mediated hepatitis [Fatal]

NARRATIVE: CASE EVENT DATE: 20201231
